FAERS Safety Report 25936112 (Version 1)
Quarter: 2025Q4

REPORT INFORMATION
  Report Type: Spontaneous
  Country: US (occurrence: US)
  Receive Date: 20251017
  Receipt Date: 20251017
  Transmission Date: 20260117
  Serious: Yes (Death)
  Sender: PURDUE
  Company Number: US-PURDUE PHARMA-USA-2025-0321423

PATIENT
  Age: 67 Year
  Sex: Male

DRUGS (1)
  1. OXYCODONE HYDROCHLORIDE [Suspect]
     Active Substance: OXYCODONE HYDROCHLORIDE
     Indication: Pain
     Dosage: UNK
     Route: 065

REACTIONS (3)
  - Gun shot wound [Fatal]
  - Victim of homicide [Fatal]
  - Drug screen positive [Unknown]

NARRATIVE: CASE EVENT DATE: 20250711
